FAERS Safety Report 5113539-0 (Version None)
Quarter: 2006Q3

REPORT INFORMATION
  Report Type: 
  Country: None (occurrence: None)
  Receive Date: 20060920
  Receipt Date: 20060908
  Transmission Date: 20061208
  Serious: Yes (Death, Hospitalization, Disabling)
  Sender: FDA-Public Use
  Company Number: 227362

PATIENT
  Age: 38 Year
  Sex: Male
  Weight: 75 kg

DRUGS (4)
  1. MABTHERA [Suspect]
     Indication: LYMPHADENOPATHY
     Dosage: SEE IMAGE
     Route: 042
     Dates: start: 20060616, end: 20060616
  2. MABTHERA [Suspect]
     Indication: LYMPHADENOPATHY
     Dosage: SEE IMAGE
     Route: 042
     Dates: start: 20060616, end: 20060616
  3. MABTHERA [Suspect]
     Indication: LYMPHADENOPATHY
     Dosage: SEE IMAGE
     Route: 042
     Dates: start: 20060709, end: 20060709
  4. MABTHERA [Suspect]
     Indication: LYMPHADENOPATHY
     Dosage: SEE IMAGE
     Route: 042
     Dates: start: 20060709, end: 20060709

REACTIONS (4)
  - AREFLEXIA [None]
  - POLYNEUROPATHY [None]
  - RESPIRATORY FAILURE [None]
  - SHOCK [None]
